FAERS Safety Report 8324980-7 (Version None)
Quarter: 2012Q2

REPORT INFORMATION
  Report Type: 
  Country: None (occurrence: None)
  Receive Date: 20120501
  Receipt Date: 20100305
  Transmission Date: 20120825
  Serious: No
  Sender: FDA-Public Use
  Company Number: US-TEVA-2010001370

PATIENT
  Sex: Female
  Weight: 106.69 kg

DRUGS (5)
  1. NUVIGIL [Suspect]
     Indication: SLEEP APNOEA SYNDROME
     Dosage: 250 MILLIGRAM;
     Route: 048
     Dates: start: 20100226, end: 20100304
  2. TOPROL-XL [Concomitant]
  3. CAMILA [Concomitant]
  4. FIORICET [Concomitant]
  5. PROZAC [Concomitant]

REACTIONS (3)
  - ABDOMINAL DISCOMFORT [None]
  - EYE PAIN [None]
  - DRY EYE [None]
